FAERS Safety Report 5070956-5 (Version None)
Quarter: 2006Q3

REPORT INFORMATION
  Report Type: 
  Country: None (occurrence: None)
  Receive Date: 20060804
  Receipt Date: 20051128
  Transmission Date: 20061208
  Serious: Yes (Hospitalization)
  Sender: FDA-Public Use
  Company Number: GB-AVENTIS-200520580GDDC

PATIENT
  Age: 77 Year
  Sex: Male

DRUGS (6)
  1. ARAVA [Suspect]
     Indication: RHEUMATOID ARTHRITIS
     Dates: end: 20051101
  2. DISOPYRAMIDE [Concomitant]
     Dosage: DOSE: UNK
  3. NEORAL [Concomitant]
     Dosage: DOSE: UNK
  4. FOSAMAX [Concomitant]
     Dosage: DOSE: UNK
  5. LANSOPRAZOLE [Concomitant]
     Dosage: DOSE: UNK
  6. MELOXICAM [Concomitant]

REACTIONS (6)
  - ATRIAL FIBRILLATION [None]
  - CIRCULATORY COLLAPSE [None]
  - DEHYDRATION [None]
  - DIARRHOEA [None]
  - EATING DISORDER [None]
  - MUSCLE STRAIN [None]
